FAERS Safety Report 4477044-7 (Version None)
Quarter: 2004Q4

REPORT INFORMATION
  Report Type: 
  Country: None (occurrence: None)
  Receive Date: 20041018
  Receipt Date: 20041006
  Transmission Date: 20050328
  Serious: Yes (Other)
  Sender: FDA-Public Use
  Company Number: US-BRISTOL-MYERS SQUIBB COMPANY-12725248

PATIENT
  Age: 51 Year
  Sex: Male

DRUGS (5)
  1. REYATAZ [Suspect]
     Indication: HIV INFECTION
     Route: 048
     Dates: start: 20040901, end: 20040922
  2. RITONAVIR [Concomitant]
     Indication: HIV INFECTION
  3. EPZICOM [Concomitant]
     Indication: HIV INFECTION
  4. EPIVIR [Concomitant]
     Indication: HIV INFECTION
  5. ABACAVIR SULFATE [Concomitant]
     Indication: HIV INFECTION

REACTIONS (1)
  - MANIA [None]
